FAERS Safety Report 4802911-1 (Version None)
Quarter: 2005Q4

REPORT INFORMATION
  Report Type: 
  Country: None (occurrence: None)
  Receive Date: 20051017
  Receipt Date: 20051017
  Transmission Date: 20060501
  Serious: Yes (Other)
  Sender: FDA-Public Use
  Company Number: None

PATIENT
  Age: 36 Year
  Sex: Male

DRUGS (1)
  1. PAXIL [Suspect]
     Indication: PREMATURE EJACULATION
     Dosage: 20MG DAILY PO
     Route: 048
     Dates: start: 19990101, end: 20051001

REACTIONS (9)
  - ANGER [None]
  - DIZZINESS [None]
  - EMOTIONAL DISORDER [None]
  - FEELING ABNORMAL [None]
  - HEADACHE [None]
  - HYPERHIDROSIS [None]
  - INAPPROPRIATE AFFECT [None]
  - INSOMNIA [None]
  - NAUSEA [None]
